FAERS Safety Report 6185509-5 (Version None)
Quarter: 2009Q2

REPORT INFORMATION
  Report Type: 
  Country: None (occurrence: None)
  Receive Date: 20090511
  Receipt Date: 20090430
  Transmission Date: 20091009
  Serious: Yes (Other)
  Sender: FDA-Public Use
  Company Number: JP-ASTRAZENECA-2009SE01717

PATIENT
  Sex: Female
  Weight: 86 kg

DRUGS (3)
  1. BLOPRESS (EMRA) [Suspect]
     Indication: HYPERTENSION
     Route: 048
     Dates: start: 20090403
  2. LEVOTHYROXINE SODIUM [Concomitant]
     Route: 048
  3. TORSEMIDE [Concomitant]
     Route: 048

REACTIONS (2)
  - HYPERSENSITIVITY [None]
  - URTICARIA [None]
